FAERS Safety Report 15941614 (Version 1)
Quarter: 2019Q1

REPORT INFORMATION
  Report Type: Spontaneous
  Country: US (occurrence: US)
  Receive Date: 20190208
  Receipt Date: 20190208
  Transmission Date: 20190417
  Serious: Yes (Other)
  Sender: FDA-Public Use
  Company Number: None

PATIENT
  Age: 57 Year
  Sex: Female
  Weight: 67.5 kg

DRUGS (5)
  1. QVAR REDIHALER [Suspect]
     Active Substance: BECLOMETHASONE DIPROPIONATE
     Indication: PALPITATIONS
     Dosage: ?          QUANTITY:2 PUFF(S);?
     Route: 055
     Dates: start: 20180901, end: 20181101
  2. 5 MG CRESTOR [Concomitant]
  3. 1 MULTI VITAMIN [Concomitant]
  4. QVAR REDIHALER [Suspect]
     Active Substance: BECLOMETHASONE DIPROPIONATE
     Indication: ASTHMA
     Dosage: ?          QUANTITY:2 PUFF(S);?
     Route: 055
     Dates: start: 20180901, end: 20181101
  5. 112 MG SYNTHROID [Concomitant]

REACTIONS (2)
  - Product design issue [None]
  - Drug ineffective [None]

NARRATIVE: CASE EVENT DATE: 20190101
